FAERS Safety Report 8959877 (Version 1)
Quarter: 2012Q4

REPORT INFORMATION
  Report Type: Report from Study
  Country: FR (occurrence: FR)
  Receive Date: 20121211
  Receipt Date: 20121211
  Transmission Date: 20130627
  Serious: Yes (Other)
  Sender: FDA-Public Use
  Company Number: FR-BAXTER-2012BAX026041

PATIENT
  Sex: Male
  Weight: 80 kg

DRUGS (10)
  1. ENDOXAN 2000 MG, LYOPHILISAT POUR SOLUTION INJECTABLE [Suspect]
     Indication: NODULAR (FOLLICULAR) LYMPHOMA
     Route: 042
     Dates: start: 20061211
  2. ENDOXAN 2000 MG, LYOPHILISAT POUR SOLUTION INJECTABLE [Suspect]
     Route: 042
     Dates: start: 20070403
  3. RITUXIMAB [Suspect]
     Indication: NODULAR (FOLLICULAR) LYMPHOMA
     Route: 042
     Dates: start: 20061211, end: 20070315
  4. RITUXIMAB [Suspect]
     Route: 042
     Dates: start: 20070710, end: 20090318
  5. DOXORUBICIN [Suspect]
     Indication: NODULAR (FOLLICULAR) LYMPHOMA
     Route: 042
     Dates: start: 20061211
  6. DOXORUBICIN [Suspect]
     Route: 042
     Dates: start: 20070403
  7. VINCRISTINE [Suspect]
     Indication: NODULAR (FOLLICULAR) LYMPHOMA
     Route: 042
     Dates: start: 20061211
  8. VINCRISTINE [Suspect]
     Route: 042
     Dates: start: 20070403
  9. PREDNISOLONE [Suspect]
     Indication: NODULAR (FOLLICULAR) LYMPHOMA
     Route: 048
     Dates: start: 20061211
  10. PREDNISOLONE [Suspect]
     Route: 048
     Dates: start: 20070407

REACTIONS (1)
  - Basal cell carcinoma [Recovered/Resolved]
